FAERS Safety Report 8085267-3 (Version None)
Quarter: 2012Q1

REPORT INFORMATION
  Report Type: 
  Country: None (occurrence: None)
  Receive Date: 20120128
  Receipt Date: 20110322
  Transmission Date: 20120608
  Serious: No
  Sender: FDA-Public Use
  Company Number: US-ABBOTT-11P-163-0713360-00

PATIENT
  Age: 52 Year
  Sex: Female

DRUGS (6)
  1. LYRICA [Concomitant]
     Indication: FIBROMYALGIA
  2. IBUPROFEN [Concomitant]
     Indication: TRIGEMINAL NEURALGIA
  3. HUMIRA [Suspect]
     Indication: ANKYLOSING SPONDYLITIS
     Dates: start: 20100501
  4. ZOLOFT [Concomitant]
     Indication: DEPRESSION
  5. RAMIPRIL [Concomitant]
     Indication: HYPERTENSION
  6. SUPPLEMENTS [Concomitant]
     Indication: PRODUCT USED FOR UNKNOWN INDICATION

REACTIONS (5)
  - ANKYLOSING SPONDYLITIS [None]
  - NASOPHARYNGITIS [None]
  - OROPHARYNGEAL PAIN [None]
  - FATIGUE [None]
  - RHINORRHOEA [None]
